FAERS Safety Report 18680098 (Version 1)
Quarter: 2020Q4

REPORT INFORMATION
  Report Type: Spontaneous
  Country: IT (occurrence: IT)
  Receive Date: 20201230
  Receipt Date: 20201230
  Transmission Date: 20210114
  Serious: Yes (Other)
  Sender: FDA-Public Use
  Company Number: IT-DRREDDYS-USA/ITL/20/0130492

PATIENT
  Age: 59 Year
  Sex: Male

DRUGS (7)
  1. DARUNAVIR [Concomitant]
     Active Substance: DARUNAVIR
     Indication: HIV INFECTION
  2. NUVIQ [Concomitant]
     Indication: FACTOR VIII DEFICIENCY
     Dates: start: 201709
  3. ACETYLSALICYLIC ACID [Suspect]
     Active Substance: ASPIRIN
     Indication: ACUTE MYOCARDIAL INFARCTION
     Dates: start: 201704
  4. DOLUTEGRAVIR [Concomitant]
     Active Substance: DOLUTEGRAVIR
     Indication: HEPATITIS C
     Dates: start: 2016
  5. CLOPIDOGREL BISULFATE. [Suspect]
     Active Substance: CLOPIDOGREL BISULFATE
     Indication: ACUTE MYOCARDIAL INFARCTION
     Dates: start: 201704
  6. DOLUTEGRAVIR [Concomitant]
     Active Substance: DOLUTEGRAVIR
     Indication: HIV INFECTION
  7. DARUNAVIR [Concomitant]
     Active Substance: DARUNAVIR
     Indication: HEPATITIS C
     Dates: start: 2016

REACTIONS (2)
  - Condition aggravated [Recovering/Resolving]
  - Haemarthrosis [Recovering/Resolving]
